FAERS Safety Report 20073815 (Version 1)
Quarter: 2021Q4

REPORT INFORMATION
  Report Type: Spontaneous
  Country: US (occurrence: US)
  Receive Date: 20211116
  Receipt Date: 20211116
  Transmission Date: 20220303
  Serious: No
  Sender: FDA-Public Use
  Company Number: US-ALLERGAN-2101990US

PATIENT
  Age: 69 Year
  Sex: Female

DRUGS (4)
  1. ARMOUR THYROID [Suspect]
     Active Substance: THYROID, PORCINE
     Indication: Hypothyroidism
     Dosage: CUT TB IN HALF TWICE TO TAKE THE 15 MG DOSE PRESCRIBED BY THE DOCTOR
     Route: 048
     Dates: start: 202101
  2. PILOCARPINE HYDROCHLORIDE [Suspect]
     Active Substance: PILOCARPINE HYDROCHLORIDE
     Indication: Intraocular pressure increased
     Dosage: ACTUAL: PRN
     Route: 047
  3. ALPHAGAN P [Suspect]
     Active Substance: BRIMONIDINE TARTRATE
     Indication: Intraocular pressure increased
     Dosage: ACTUAL:  PRN
     Route: 047
  4. COSOPT [Suspect]
     Active Substance: DORZOLAMIDE HYDROCHLORIDE\TIMOLOL MALEATE
     Indication: Intraocular pressure increased
     Dosage: ACTUAL: PRN
     Route: 047

REACTIONS (2)
  - Wrong technique in product usage process [Unknown]
  - Intentional product misuse [Unknown]
